FAERS Safety Report 5957666-4 (Version None)
Quarter: 2008Q4

REPORT INFORMATION
  Report Type: 
  Country: None (occurrence: None)
  Receive Date: 20081117
  Receipt Date: 20081030
  Transmission Date: 20090506
  Serious: Yes (Hospitalization)
  Sender: FDA-Public Use
  Company Number: 20548

PATIENT
  Age: 39 Year
  Sex: Female

DRUGS (3)
  1. CARBOPLATIN [Suspect]
     Indication: OVARIAN CANCER
     Dosage: 510 MG PER_CYCLE IV
     Route: 042
     Dates: start: 20080718, end: 20080718
  2. TAXOTERE [Concomitant]
  3. AVASTIN [Concomitant]

REACTIONS (4)
  - BRONCHOSPASM [None]
  - ERYTHEMA [None]
  - HYPERSENSITIVITY [None]
  - HYPOTHERMIA [None]
